FAERS Safety Report 23221440 (Version 2)
Quarter: 2023Q4

REPORT INFORMATION
  Report Type: Report from Study
  Country: US (occurrence: US)
  Receive Date: 20231123
  Receipt Date: 20231201
  Transmission Date: 20240109
  Serious: Yes (Death, Life-Threatening, Hospitalization)
  Sender: FDA-Public Use
  Company Number: US-GENMAB-2022-00606

PATIENT
  Age: 80 Year
  Sex: Male
  Weight: 76.657 kg

DRUGS (43)
  1. EPCORITAMAB [Suspect]
     Active Substance: EPCORITAMAB
     Indication: Diffuse large B-cell lymphoma stage IV
     Dosage: C1D1
     Route: 058
     Dates: start: 20220512, end: 20220512
  2. EPCORITAMAB [Suspect]
     Active Substance: EPCORITAMAB
     Dosage: C1D8
     Route: 058
     Dates: start: 20220519, end: 20220519
  3. EPCORITAMAB [Suspect]
     Active Substance: EPCORITAMAB
     Dosage: C1D15
     Route: 058
     Dates: start: 20220526, end: 20220526
  4. GEMCITABINE [Suspect]
     Active Substance: GEMCITABINE
     Indication: Diffuse large B-cell lymphoma stage IV
     Dosage: C1D1
     Route: 042
     Dates: start: 20220512, end: 20220512
  5. GEMCITABINE [Suspect]
     Active Substance: GEMCITABINE
     Dosage: C1D15
     Route: 042
     Dates: start: 20220526, end: 20220526
  6. OXALIPLATIN [Suspect]
     Active Substance: OXALIPLATIN
     Indication: Diffuse large B-cell lymphoma stage IV
     Dosage: C1D1
     Route: 042
     Dates: start: 20220512, end: 20220512
  7. OXALIPLATIN [Suspect]
     Active Substance: OXALIPLATIN
     Dosage: C1D15
     Route: 042
     Dates: start: 20220526, end: 20220526
  8. DIPHENHYDRAMINE [Concomitant]
     Active Substance: DIPHENHYDRAMINE
     Indication: Premedication
     Dosage: 50 MILLIGRAM, SINGLE
     Route: 048
     Dates: start: 20220526, end: 20220526
  9. ACETAMINOPHEN [Concomitant]
     Active Substance: ACETAMINOPHEN
     Indication: Premedication
     Dosage: 650 MILLIGRAM, SINGLE
     Route: 048
     Dates: start: 20220526, end: 20220526
  10. PREDNISONE [Concomitant]
     Active Substance: PREDNISONE
     Indication: Prophylaxis
     Route: 048
     Dates: start: 20220513, end: 20220516
  11. PREDNISONE [Concomitant]
     Active Substance: PREDNISONE
     Dosage: 100 MILLIGRAM, SINGLE
     Route: 048
     Dates: start: 20220519, end: 20220519
  12. PREDNISONE [Concomitant]
     Active Substance: PREDNISONE
     Dosage: 60 MILLIGRAM, QD
     Route: 048
     Dates: start: 20220520, end: 20220522
  13. PREDNISONE [Concomitant]
     Active Substance: PREDNISONE
     Dosage: 40 MILLIGRAM, QD
     Route: 048
     Dates: start: 20220523, end: 20220523
  14. PREDNISONE [Concomitant]
     Active Substance: PREDNISONE
     Dosage: 20 MILLIGRAM, QD
     Route: 048
     Dates: start: 20220524, end: 20220524
  15. DEXAMETHASONE [Concomitant]
     Active Substance: DEXAMETHASONE
     Indication: Prophylaxis
     Dosage: 16 MILLIGRAM, SINGLE
     Route: 042
     Dates: start: 20220526, end: 20220526
  16. DEXAMETHASONE [Concomitant]
     Active Substance: DEXAMETHASONE
     Indication: Prophylaxis
     Dosage: 16 MILLIGRAM, SINGLE
     Route: 042
     Dates: start: 20220602, end: 20220602
  17. DEXAMETHASONE [Concomitant]
     Active Substance: DEXAMETHASONE
     Dosage: 10 MILLIGRAM, Q12H
     Route: 042
     Dates: start: 20220604, end: 20220605
  18. DEXAMETHASONE [Concomitant]
     Active Substance: DEXAMETHASONE
     Dosage: 10 MILLIGRAM, SINGLE
     Route: 042
     Dates: start: 20220606, end: 20220606
  19. DEXAMETHASONE [Concomitant]
     Active Substance: DEXAMETHASONE
     Dosage: FREQUENCY : CONTINUOUS
     Route: 042
     Dates: start: 20220607, end: 20220620
  20. DEXAMETHASONE [Concomitant]
     Active Substance: DEXAMETHASONE
     Dosage: FREQUENCY : CONTINUOUS
     Route: 042
     Dates: start: 20220624, end: 20220628
  21. ATIVAN [Concomitant]
     Active Substance: LORAZEPAM
     Indication: Catatonia
     Dosage: 2 MILLIGRAM, TWICE
     Dates: start: 20220613, end: 20220613
  22. LOVENOX [Concomitant]
     Active Substance: ENOXAPARIN SODIUM
     Indication: Atrial fibrillation
     Dosage: 80 MILLIGRAM, PRN
     Route: 042
     Dates: start: 20220604
  23. LOVENOX [Concomitant]
     Active Substance: ENOXAPARIN SODIUM
     Indication: Prophylaxis
  24. GABAPENTIN [Concomitant]
     Active Substance: GABAPENTIN
     Dosage: 300 MILLIGRAM, QD (QPM)
     Route: 048
     Dates: start: 2020
  25. WELLBUTRIN [Concomitant]
     Active Substance: BUPROPION HYDROCHLORIDE
     Dosage: 300 MILLIGRAM, QD
     Route: 048
     Dates: start: 2020
  26. MIDODRINE [Concomitant]
     Active Substance: MIDODRINE
     Dosage: 10 MILLIGRAM, QD
     Route: 048
     Dates: start: 2020
  27. KEPPRA [Concomitant]
     Active Substance: LEVETIRACETAM
     Dosage: UNK
     Dates: end: 20220603
  28. ACETAMINOPHEN [Concomitant]
     Active Substance: ACETAMINOPHEN
     Dosage: 650 MILLIGRAM, PRN
     Route: 048
     Dates: start: 2021
  29. ACYCLOVIR [Concomitant]
     Active Substance: ACYCLOVIR
     Indication: Prophylaxis
     Dosage: 400 MILLIGRAM, BID
     Route: 048
     Dates: start: 20220526
  30. CRESTOR [Concomitant]
     Active Substance: ROSUVASTATIN CALCIUM
     Dosage: 10 MILLIGRAM, QD
     Route: 048
     Dates: start: 2020
  31. LOPRESSOR [Concomitant]
     Active Substance: METOPROLOL TARTRATE
     Indication: Atrial fibrillation
     Dosage: UNK
  32. CIPROFLOXACIN [Concomitant]
     Active Substance: CIPROFLOXACIN
     Indication: Urinary retention
     Dosage: UNK (5 DAY COURSE)
     Dates: start: 20220617, end: 20220620
  33. LACTULOSE [Concomitant]
     Active Substance: LACTULOSE
     Dosage: 15 MILLILITER, PRN
     Route: 048
     Dates: start: 2021
  34. CEFEPIME [Concomitant]
     Active Substance: CEFEPIME HYDROCHLORIDE
     Indication: Prophylaxis
     Dosage: 2 GRAM, Q8H
     Route: 042
     Dates: start: 20220620
  35. CEFEPIME [Concomitant]
     Active Substance: CEFEPIME HYDROCHLORIDE
     Dosage: 2 GRAM, Q8H
     Route: 042
     Dates: start: 20220529, end: 20220605
  36. TRAZODONE [Concomitant]
     Active Substance: TRAZODONE HYDROCHLORIDE
     Dosage: FREQUENCY : TAKE 0.5 TABLETS BY MOUTH AT BEDTIME PRN
     Route: 048
     Dates: start: 20220526
  37. APIXABAN [Concomitant]
     Active Substance: APIXABAN
     Indication: Atrial fibrillation
     Route: 048
     Dates: start: 20220529, end: 20220603
  38. HUMALOG [Concomitant]
     Active Substance: INSULIN LISPRO
     Dosage: QPM
     Route: 058
     Dates: start: 20220520, end: 20220628
  39. SODIUM CHLORIDE [Concomitant]
     Active Substance: SODIUM CHLORIDE
     Indication: Fatigue
     Dosage: 2000 MILLILITER, SINGLE
     Route: 042
     Dates: start: 20220518, end: 20220518
  40. SODIUM CHLORIDE [Concomitant]
     Active Substance: SODIUM CHLORIDE
     Dosage: 1000 MILLILITER, SINGLE
     Route: 042
     Dates: start: 20220519, end: 20220519
  41. ASPIRIN [Concomitant]
     Active Substance: ASPIRIN
     Route: 048
     Dates: start: 20201013, end: 20220606
  42. MELATONIN [Concomitant]
     Active Substance: MELATONIN
     Dosage: QPM
     Route: 048
     Dates: start: 20220523, end: 20220601
  43. SENNOSIDES [Concomitant]
     Active Substance: SENNOSIDES
     Indication: Constipation
     Dosage: 2 DOSAGE BID
     Route: 048
     Dates: start: 20220525, end: 20220528

REACTIONS (2)
  - Immune effector cell-associated neurotoxicity syndrome [Fatal]
  - Cytokine release syndrome [Recovered/Resolved]

NARRATIVE: CASE EVENT DATE: 20220528
